FAERS Safety Report 8369263-4 (Version None)
Quarter: 2012Q2

REPORT INFORMATION
  Report Type: 
  Country: None (occurrence: None)
  Receive Date: 20120518
  Receipt Date: 20120509
  Transmission Date: 20120825
  Serious: Yes (Other)
  Sender: FDA-Public Use
  Company Number: PHHY2012JP039905

PATIENT
  Age: 86 Year
  Sex: Male

DRUGS (3)
  1. ALLOPURINOL [Suspect]
     Dosage: 100 MG, DAILY
     Route: 048
  2. DIOVAN [Suspect]
     Indication: HYPERTENSION
     Dosage: 40 MG, DAILY
     Route: 048
  3. THEOPHYLLINE [Suspect]
     Dosage: 100 MG, DAILY
     Route: 048

REACTIONS (2)
  - PYREXIA [None]
  - RHABDOMYOLYSIS [None]
